FAERS Safety Report 23257465 (Version 1)
Quarter: 2023Q4

REPORT INFORMATION
  Report Type: Spontaneous
  Country: US (occurrence: None)
  Receive Date: 20231204
  Receipt Date: 20231204
  Transmission Date: 20240110
  Serious: Yes (Other)
  Sender: FDA-Public Use
  Company Number: US-Unichem Pharmaceuticals (USA) Inc-UCM202311-001513

PATIENT
  Age: 66 Year
  Sex: Male

DRUGS (1)
  1. BACLOFEN [Suspect]
     Active Substance: BACLOFEN
     Indication: Muscle spasms

REACTIONS (4)
  - Altered state of consciousness [Recovering/Resolving]
  - Disorientation [Recovering/Resolving]
  - Unresponsive to stimuli [Recovering/Resolving]
  - Toxicity to various agents [Unknown]
